FAERS Safety Report 11930161 (Version 1)
Quarter: 2016Q1

REPORT INFORMATION
  Report Type: Spontaneous
  Country: NL (occurrence: NL)
  Receive Date: 20160120
  Receipt Date: 20160120
  Transmission Date: 20160526
  Serious: Yes (Death)
  Sender: FDA-Public Use
  Company Number: ALCN2014NL005498

PATIENT
  Age: 38 Year
  Sex: Male
  Weight: 75 kg

DRUGS (1)
  1. DUOTRAV POLYQUAD [Suspect]
     Active Substance: TIMOLOL MALEATE\TRAVOPROST
     Indication: PIGMENTARY GLAUCOMA
     Dosage: UNK
     Route: 047
     Dates: start: 20140131

REACTIONS (4)
  - Genital discomfort [Fatal]
  - Dysuria [Fatal]
  - Insomnia [Fatal]
  - Completed suicide [Fatal]

NARRATIVE: CASE EVENT DATE: 20140523
